FAERS Safety Report 4545348-5 (Version None)
Quarter: 2005Q1

REPORT INFORMATION
  Report Type: 
  Country: None (occurrence: None)
  Receive Date: 20050103
  Receipt Date: 20041217
  Transmission Date: 20050727
  Serious: Yes (Hospitalization)
  Sender: FDA-Public Use
  Company Number: A02200403754

PATIENT
  Age: 42 Year
  Sex: Male

DRUGS (6)
  1. STILNOX (ZOLPIDEM) TABLET 10 MG [Suspect]
     Dosage: 10 MG OD
     Route: 048
     Dates: start: 20030825, end: 20030915
  2. URBANYL (CLOBAZAM) [Concomitant]
  3. MIXTARD (HUMAN INSULIN) [Concomitant]
  4. ESPERAL (DISULFIRAM) [Concomitant]
  5. STABLON (TIANEPTINE) [Concomitant]
  6. AOTAL (ACAMPROSATE) [Concomitant]

REACTIONS (26)
  - ANTINEUTROPHIL CYTOPLASMIC ANTIBODY POSITIVE [None]
  - BALANITIS [None]
  - BLOOD IMMUNOGLOBULIN A INCREASED [None]
  - BLOOD IMMUNOGLOBULIN E INCREASED [None]
  - BLOOD IMMUNOGLOBULIN G INCREASED [None]
  - CD4 LYMPHOCYTES DECREASED [None]
  - CHEILITIS [None]
  - CHEST X-RAY ABNORMAL [None]
  - CONJUNCTIVITIS [None]
  - COXIELLA INFECTION [None]
  - CRYOGLOBULINS PRESENT [None]
  - ENANTHEMA [None]
  - EOSINOPHIL COUNT INCREASED [None]
  - ERYTHEMA MULTIFORME [None]
  - GAMMA-GLUTAMYLTRANSFERASE INCREASED [None]
  - GENITAL CANDIDIASIS [None]
  - HEPATOMEGALY [None]
  - INTERNATIONAL NORMALISED RATIO ABNORMAL [None]
  - LYMPHADENOPATHY [None]
  - MALARIA [None]
  - PROTEINURIA [None]
  - PRURITUS [None]
  - PYREXIA [None]
  - RASH PRURITIC [None]
  - RED BLOOD CELL SEDIMENTATION RATE INCREASED [None]
  - STAPHYLOCOCCAL BACTERAEMIA [None]
